FAERS Safety Report 9670458 (Version 3)
Quarter: 2014Q2

REPORT INFORMATION
  Report Type: Report from Study
  Country: CO (occurrence: CO)
  Receive Date: 20131106
  Receipt Date: 20140528
  Transmission Date: 20141212
  Serious: Yes (Hospitalization)
  Sender: FDA-Public Use
  Company Number: CO-ROCHE-1298478

PATIENT
  Sex: Male
  Weight: 28 kg

DRUGS (3)
  1. XOLAIR [Suspect]
     Indication: PRODUCT USED FOR UNKNOWN INDICATION
     Route: 058
  2. XOLAIR [Suspect]
     Route: 058
  3. SERETIDE [Concomitant]
     Route: 065
     Dates: start: 20130922

REACTIONS (3)
  - Condition aggravated [Unknown]
  - Tracheomalacia [Not Recovered/Not Resolved]
  - Discomfort [Unknown]
